FAERS Safety Report 9438810 (Version 2)
Quarter: 2013Q3

REPORT INFORMATION
  Report Type: Spontaneous
  Country: US (occurrence: US)
  Receive Date: 20130802
  Receipt Date: 20130820
  Transmission Date: 20140515
  Serious: No
  Sender: FDA-Public Use
  Company Number: US-PFIZER INC-2013223900

PATIENT
  Age: 54 Year
  Sex: Male

DRUGS (2)
  1. EFFEXOR XR [Suspect]
     Dosage: 150 MG, 1X/DAY (2 CAPSULES OF 75 MG)
  2. TERAZOSIN [Concomitant]
     Dosage: 2 MG, UNK

REACTIONS (1)
  - Mental disorder [Unknown]
